FAERS Safety Report 24318113 (Version 2)
Quarter: 2024Q4

REPORT INFORMATION
  Report Type: Spontaneous
  Country: TH (occurrence: TH)
  Receive Date: 20240913
  Receipt Date: 20241014
  Transmission Date: 20250114
  Serious: Yes (Death, Other)
  Sender: ROCHE
  Company Number: TH-ROCHE-10000076982

PATIENT
  Age: 48 Year

DRUGS (4)
  1. PERJETA [Suspect]
     Active Substance: PERTUZUMAB
     Indication: Breast cancer
     Route: 065
  2. TRASTUZUMAB [Suspect]
     Active Substance: TRASTUZUMAB
     Indication: Breast cancer
     Route: 065
  3. CARBOPLATIN [Suspect]
     Active Substance: CARBOPLATIN
     Indication: Breast cancer
     Route: 065
  4. DOCETAXEL [Suspect]
     Active Substance: DOCETAXEL
     Indication: Breast cancer
     Route: 065

REACTIONS (3)
  - Metastatic neoplasm [Unknown]
  - Death [Fatal]
  - Cardiac failure congestive [Unknown]
